FAERS Safety Report 7485045-X (Version None)
Quarter: 2011Q2

REPORT INFORMATION
  Report Type: 
  Country: None (occurrence: None)
  Receive Date: 20110517
  Receipt Date: 20110506
  Transmission Date: 20111010
  Serious: Yes (Death, Hospitalization)
  Sender: FDA-Public Use
  Company Number: DE-ROCHE-775934

PATIENT
  Sex: Male

DRUGS (4)
  1. PEMETREXED [Suspect]
     Indication: NON-SMALL CELL LUNG CANCER
     Dosage: DOSAGE FORM IV. LAST DOSE PRIOR TO SAE: 07 APR 2011.
     Route: 042
     Dates: start: 20101008, end: 20110407
  2. BEVACIZUMAB [Suspect]
     Dosage: FREQUENCY 1
     Route: 042
     Dates: start: 20110407
  3. PEMETREXED [Suspect]
     Dosage: FREQUENCY 1.
     Route: 042
     Dates: start: 20110407
  4. BEVACIZUMAB [Suspect]
     Indication: NON-SMALL CELL LUNG CANCER
     Dosage: DOSAGE FORM: IV LAST DOSE PRIOR TO SAE :07 APR 2011.
     Route: 042
     Dates: start: 20101008, end: 20110407

REACTIONS (1)
  - GENERAL PHYSICAL HEALTH DETERIORATION [None]
